FAERS Safety Report 21147399 (Version 1)
Quarter: 2022Q3

REPORT INFORMATION
  Report Type: Spontaneous
  Country: US (occurrence: None)
  Receive Date: 20220728
  Receipt Date: 20220728
  Transmission Date: 20221027
  Serious: Yes (Death)
  Sender: FDA-Public Use
  Company Number: None

PATIENT
  Age: 78 Year
  Sex: Male

DRUGS (1)
  1. APIXABAN [Suspect]
     Active Substance: APIXABAN

REACTIONS (6)
  - Headache [None]
  - Fall [None]
  - Unresponsive to stimuli [None]
  - Subdural haematoma [None]
  - Cerebral mass effect [None]
  - Cerebral haemorrhage [None]

NARRATIVE: CASE EVENT DATE: 20220218
